FAERS Safety Report 6252348-6 (Version None)
Quarter: 2009Q3

REPORT INFORMATION
  Report Type: 
  Country: None (occurrence: None)
  Receive Date: 20090701
  Receipt Date: 20090624
  Transmission Date: 20100115
  Serious: Yes (Death)
  Sender: FDA-Public Use
  Company Number: CH-WYE-G03930909

PATIENT
  Age: 70 Year
  Sex: Female

DRUGS (2)
  1. PIPERACILLIN SODIUM AND TAZOBACTAM SODIUM [Suspect]
     Indication: PNEUMONIA
     Dosage: DOSE AND FREQUENCY UNKNOWN
     Dates: start: 20090201, end: 20090216
  2. METHOTREXATE [Suspect]
     Indication: RHEUMATOID ARTHRITIS
     Dosage: DOSE AND FREQUENCY UNKNOWN

REACTIONS (15)
  - ALVEOLITIS [None]
  - ANURIA [None]
  - BONE MARROW BAND NEUTROPHIL COUNT INCREASED [None]
  - CELL DEATH [None]
  - DIFFUSE ALVEOLAR DAMAGE [None]
  - DRUG INEFFECTIVE [None]
  - HEPATIC STEATOSIS [None]
  - METABOLIC ACIDOSIS [None]
  - MULTI-ORGAN FAILURE [None]
  - RENAL FAILURE [None]
  - RESPIRATORY FAILURE [None]
  - SEPSIS [None]
  - SHOCK [None]
  - SPLEEN DISORDER [None]
  - SPLENITIS [None]
